FAERS Safety Report 6408669-7 (Version None)
Quarter: 2009Q4

REPORT INFORMATION
  Report Type: 
  Country: None (occurrence: None)
  Receive Date: 20091021
  Receipt Date: 20091014
  Transmission Date: 20100525
  Serious: Yes (Death, Congenital Anomaly)
  Sender: FDA-Public Use
  Company Number: CH-BAYER-200935759GPV

PATIENT
  Age: 3 Month

DRUGS (3)
  1. ASPIRIN [Suspect]
     Indication: CEREBROVASCULAR ACCIDENT
     Dosage: TOTAL DAILY DOSE: 100 MG  UNIT DOSE: 100 MG
     Route: 064
     Dates: start: 20090101
  2. CLEXANE [Suspect]
     Indication: THROMBOSIS PROPHYLAXIS
     Dosage: TOTAL DAILY DOSE: 40 MG
     Route: 064
     Dates: start: 20090416, end: 20090512
  3. CLEXANE [Suspect]
     Dosage: TOTAL DAILY DOSE: 120 MG
     Route: 064
     Dates: start: 20090513

REACTIONS (2)
  - DEATH NEONATAL [None]
  - FOETAL CYSTIC HYGROMA [None]
